FAERS Safety Report 13703975 (Version 1)
Quarter: 2017Q2

REPORT INFORMATION
  Report Type: Spontaneous
  Country: MX (occurrence: MX)
  Receive Date: 20170629
  Receipt Date: 20170629
  Transmission Date: 20170830
  Serious: Yes (Other)
  Sender: FDA-Public Use
  Company Number: MX-SA-2017SA113091

PATIENT
  Age: 61 Year
  Sex: Male
  Weight: 96 kg

DRUGS (3)
  1. SOLOSTAR [Concomitant]
     Active Substance: DEVICE
     Dates: start: 20170530
  2. JANUMET [Concomitant]
     Active Substance: METFORMIN HYDROCHLORIDE\SITAGLIPTIN PHOSPHATE
     Route: 065
     Dates: end: 2017
  3. TOUJEO [Suspect]
     Active Substance: INSULIN GLARGINE
     Indication: DIABETES MELLITUS
     Route: 058
     Dates: start: 20170530

REACTIONS (2)
  - Uveitis [Not Recovered/Not Resolved]
  - Hyperglycaemia [Not Recovered/Not Resolved]

NARRATIVE: CASE EVENT DATE: 20170530
